FAERS Safety Report 10479450 (Version 3)
Quarter: 2015Q1

REPORT INFORMATION
  Report Type: Report from Study
  Country: US (occurrence: US)
  Receive Date: 20140926
  Receipt Date: 20150105
  Transmission Date: 20150720
  Serious: Yes (Other)
  Sender: FDA-Public Use
  Company Number: US-ALEXION PHARMACEUTICALS INC-A201203143

PATIENT

DRUGS (1)
  1. SOLIRIS [Suspect]
     Active Substance: ECULIZUMAB
     Indication: PAROXYSMAL NOCTURNAL HAEMOGLOBINURIA
     Dosage: UNK
     Route: 042

REACTIONS (12)
  - Biopsy bone marrow [Unknown]
  - Depressed mood [Unknown]
  - Feeling hot [Recovered/Resolved]
  - Transfusion [Unknown]
  - Haemoglobin decreased [Unknown]
  - Infection [Unknown]
  - Drug ineffective [Unknown]
  - Dyspnoea [Unknown]
  - Anger [Unknown]
  - Arrhythmia [Unknown]
  - Fatigue [Unknown]
  - Feeling abnormal [Unknown]

NARRATIVE: CASE EVENT DATE: 201211
